FAERS Safety Report 12574396 (Version 1)
Quarter: 2016Q3

REPORT INFORMATION
  Report Type: Spontaneous
  Country: US (occurrence: US)
  Receive Date: 20160720
  Receipt Date: 20160720
  Transmission Date: 20161109
  Serious: No
  Sender: FDA-Public Use
  Company Number: US-AMNEAL PHARMACEUTICALS-2016AMN00179

PATIENT
  Sex: Male
  Weight: 43.84 kg

DRUGS (2)
  1. DAYTRANA [Concomitant]
     Active Substance: METHYLPHENIDATE
  2. RISPERIDONE. [Suspect]
     Active Substance: RISPERIDONE
     Indication: ATTENTION DEFICIT/HYPERACTIVITY DISORDER
     Dosage: 0.25ML IN THE MORNING AND 0.75ML IN THE NIGHT)
     Route: 048
     Dates: start: 201504

REACTIONS (1)
  - Dysgeusia [Not Recovered/Not Resolved]
